FAERS Safety Report 16629227 (Version 1)
Quarter: 2019Q3

REPORT INFORMATION
  Report Type: Report from Study
  Country: US (occurrence: US)
  Receive Date: 20190725
  Receipt Date: 20190725
  Transmission Date: 20191004
  Serious: Yes (Hospitalization, Other)
  Sender: FDA-Public Use
  Company Number: US-GILEAD-2019-0419888

PATIENT
  Age: 70 Year
  Sex: Female

DRUGS (19)
  1. BUMETANIDE. [Concomitant]
     Active Substance: BUMETANIDE
  2. SERTRALINE [Concomitant]
     Active Substance: SERTRALINE HYDROCHLORIDE
  3. SPIRONOLACTON [Concomitant]
     Active Substance: SPIRONOLACTONE
  4. SYMBICORT [Concomitant]
     Active Substance: BUDESONIDE\FORMOTEROL FUMARATE DIHYDRATE
  5. TRADJENTA [Concomitant]
     Active Substance: LINAGLIPTIN
  6. XARELTO [Concomitant]
     Active Substance: RIVAROXABAN
  7. PEPCID [Concomitant]
     Active Substance: FAMOTIDINE
  8. SILDENAFIL. [Concomitant]
     Active Substance: SILDENAFIL
  9. VERAPAMIL [Concomitant]
     Active Substance: VERAPAMIL HYDROCHLORIDE
  10. ENTRESTO [Concomitant]
     Active Substance: SACUBITRIL\VALSARTAN
  11. FAMOTIDINE. [Concomitant]
     Active Substance: FAMOTIDINE
  12. FEROSUL [Concomitant]
  13. GABAPENTIN. [Concomitant]
     Active Substance: GABAPENTIN
  14. PANTOPRAZOLE [Concomitant]
     Active Substance: PANTOPRAZOLE
  15. ALPRAZOLAM. [Concomitant]
     Active Substance: ALPRAZOLAM
  16. LACTULOSE. [Concomitant]
     Active Substance: LACTULOSE
  17. METOLAZONE. [Concomitant]
     Active Substance: METOLAZONE
  18. ROSUVASTATIN. [Concomitant]
     Active Substance: ROSUVASTATIN
  19. AMBRISENTAN [Suspect]
     Active Substance: AMBRISENTAN
     Indication: PULMONARY ARTERIAL HYPERTENSION
     Dosage: 5 MG, QD
     Route: 065

REACTIONS (2)
  - Intentional dose omission [Recovered/Resolved]
  - Intestinal obstruction [Not Recovered/Not Resolved]
